FAERS Safety Report 16947324 (Version 3)
Quarter: 2019Q4

REPORT INFORMATION
  Report Type: Report from Study
  Country: GB (occurrence: GB)
  Receive Date: 20191022
  Receipt Date: 20191104
  Transmission Date: 20200122
  Serious: Yes (Other)
  Sender: FDA-Public Use
  Company Number: GB-JNJFOC-20191017167

PATIENT
  Age: 58 Year
  Sex: Female

DRUGS (4)
  1. STELARA [Suspect]
     Active Substance: USTEKINUMAB
     Indication: PSORIATIC ARTHROPATHY
     Route: 058
     Dates: start: 20171018
  2. ALLOPURINOL. [Concomitant]
     Active Substance: ALLOPURINOL
  3. FOLIC ACID. [Concomitant]
     Active Substance: FOLIC ACID
     Route: 065
  4. ETORICOXIB. [Concomitant]
     Active Substance: ETORICOXIB

REACTIONS (6)
  - Arthritis [Not Recovered/Not Resolved]
  - Product dose omission [Unknown]
  - Breast mass [Unknown]
  - Tooth fracture [Unknown]
  - Hair growth abnormal [Unknown]
  - Drug ineffective [Unknown]

NARRATIVE: CASE EVENT DATE: 20191015
